FAERS Safety Report 6864283-0 (Version None)
Quarter: 2010Q3

REPORT INFORMATION
  Report Type: 
  Country: None (occurrence: None)
  Receive Date: 20100721
  Receipt Date: 20080320
  Transmission Date: 20110219
  Serious: No
  Sender: FDA-Public Use
  Company Number: US-PFIZER INC-2008025767

PATIENT
  Sex: Male
  Weight: 79.5 kg

DRUGS (10)
  1. CHANTIX [Suspect]
     Indication: SMOKING CESSATION THERAPY
     Dates: start: 20080114
  2. CELEBREX [Concomitant]
  3. ACETYLSALICYLIC ACID [Concomitant]
  4. GEMFIBROZIL [Concomitant]
  5. CYCLOBENZAPRINE [Concomitant]
     Dosage: 2 EVERY 1 SECONDS
  6. ATENOLOL [Concomitant]
  7. ZOCOR [Concomitant]
  8. WELLBUTRIN [Concomitant]
     Indication: POST-TRAUMATIC STRESS DISORDER
  9. NITROGLYCERIN [Concomitant]
  10. AMLODIPINE [Concomitant]

REACTIONS (1)
  - ABNORMAL DREAMS [None]
